FAERS Safety Report 5612258-1 (Version None)
Quarter: 2008Q1

REPORT INFORMATION
  Report Type: 
  Country: None (occurrence: None)
  Receive Date: 20080131
  Receipt Date: 20080131
  Transmission Date: 20080703
  Serious: Yes (Hospitalization)
  Sender: FDA-Public Use
  Company Number: None

PATIENT
  Age: 64 Year
  Sex: Female

DRUGS (2)
  1. DILANTIN [Suspect]
     Dosage: 200 MG Q12H PO
     Route: 048
     Dates: start: 20070828, end: 20070828
  2. ZOSYN [Suspect]
     Dosage: 3.375 GM Q6H IV
     Route: 042
     Dates: start: 20070810, end: 20070831

REACTIONS (3)
  - EOSINOPHILIA [None]
  - PYREXIA [None]
  - RASH MACULO-PAPULAR [None]
